FAERS Safety Report 7275272-9 (Version None)
Quarter: 2011Q1

REPORT INFORMATION
  Report Type: 
  Country: None (occurrence: None)
  Receive Date: 20110204
  Receipt Date: 20110202
  Transmission Date: 20110831
  Serious: Yes (Death)
  Sender: FDA-Public Use
  Company Number: US-AMGEN-USASP2011006282

PATIENT
  Sex: Male

DRUGS (1)
  1. VECTIBIX [Suspect]
     Indication: RECTAL CANCER
     Dates: end: 20100101

REACTIONS (1)
  - DEATH [None]
